FAERS Safety Report 4469899-7 (Version None)
Quarter: 2004Q4

REPORT INFORMATION
  Report Type: 
  Country: None (occurrence: None)
  Receive Date: 20041008
  Receipt Date: 20040614
  Transmission Date: 20050328
  Serious: Yes (Other)
  Sender: FDA-Public Use
  Company Number: PHEH2004US06492

PATIENT
  Age: 78 Year
  Sex: Male

DRUGS (4)
  1. GLEEVEC [Suspect]
     Indication: CHRONIC MYELOID LEUKAEMIA
     Dosage: 100 MG, QD
     Route: 048
     Dates: start: 20040101
  2. GLEEVEC [Suspect]
     Dosage: 600 MG, QD
     Dates: start: 20040512
  3. GLEEVEC [Suspect]
     Dosage: 400 MG, QD
  4. DIGOXIN [Suspect]

REACTIONS (7)
  - BREAST PAIN [None]
  - GYNAECOMASTIA [None]
  - LEUKOCYTOSIS [None]
  - LOOSE STOOLS [None]
  - MEDICATION ERROR [None]
  - THROMBOCYTHAEMIA [None]
  - WEIGHT DECREASED [None]
